FAERS Safety Report 24002193 (Version 1)
Quarter: 2024Q2

REPORT INFORMATION
  Report Type: Spontaneous
  Country: FR (occurrence: FR)
  Receive Date: 20240622
  Receipt Date: 20240622
  Transmission Date: 20240716
  Serious: Yes (Other)
  Sender: FDA-Public Use
  Company Number: FR-AFSSAPS-AVCN2024000426

PATIENT
  Age: 16 Year
  Sex: Female

DRUGS (1)
  1. TRAMADOL [Suspect]
     Active Substance: TRAMADOL\TRAMADOL HYDROCHLORIDE
     Indication: Product used for unknown indication
     Dosage: UNK (JUSQUE 100MG LP MATIN ET SOIR + INTERDOSES 50MG; ACTUELLEMENT EN D?CROISSANCE 10MG/J AU 27/05/2
     Route: 048
     Dates: start: 2019

REACTIONS (2)
  - Drug dependence [Recovering/Resolving]
  - Medication overuse headache [Recovered/Resolved]

NARRATIVE: CASE EVENT DATE: 20191201
